FAERS Safety Report 6863093-8 (Version None)
Quarter: 2010Q3

REPORT INFORMATION
  Report Type: 
  Country: None (occurrence: None)
  Receive Date: 20100721
  Receipt Date: 20100716
  Transmission Date: 20110219
  Serious: Yes (Other)
  Sender: FDA-Public Use
  Company Number: US-JNJFOC-20080203436

PATIENT
  Sex: Female

DRUGS (4)
  1. CONCENTRATED TYLENOL INFANT DROPS [Suspect]
     Indication: ANTIPYRESIS
     Route: 048
  2. CONCENTRATED TYLENOL INFANT DROPS [Suspect]
     Route: 048
  3. VACCINATIONS [Suspect]
     Indication: IMMUNISATION
  4. VITAMINS [Concomitant]

REACTIONS (1)
  - HAEMATOCHEZIA [None]
